FAERS Safety Report 4285074-3 (Version None)
Quarter: 2004Q1

REPORT INFORMATION
  Report Type: 
  Country: None (occurrence: None)
  Receive Date: 20040203
  Receipt Date: 20040203
  Transmission Date: 20041129
  Serious: Yes (Hospitalization)
  Sender: FDA-Public Use
  Company Number: None

PATIENT
  Age: 16 Year
  Sex: Male
  Weight: 89 kg

DRUGS (6)
  1. CYTARABINE [Suspect]
     Indication: ACUTE MYELOID LEUKAEMIA
     Dosage: 190 MG IV Q 12H
     Route: 042
     Dates: start: 20031210, end: 20031218
  2. DAUNOMYCIN [Suspect]
     Indication: ACUTE MYELOID LEUKAEMIA
     Dosage: 95 MG IV OVER 6 HRS
     Route: 042
     Dates: start: 20031210
  3. DAUNOMYCIN [Suspect]
     Indication: ACUTE MYELOID LEUKAEMIA
     Dosage: 95 MG IV OVER 6 HRS
     Route: 042
     Dates: start: 20031212
  4. DAUNOMYCIN [Suspect]
     Indication: ACUTE MYELOID LEUKAEMIA
     Dosage: 95 MG IV OVER 6 HRS
     Route: 042
     Dates: start: 20031214
  5. BACTRIM [Concomitant]
  6. PERIDEX [Concomitant]

REACTIONS (9)
  - ASPERGILLOSIS [None]
  - BONE MARROW DEPRESSION [None]
  - CELLULITIS [None]
  - COMPUTERISED TOMOGRAM ABNORMAL [None]
  - CULTURE POSITIVE [None]
  - EYE DISORDER [None]
  - NODULE [None]
  - OSTEONECROSIS [None]
  - SINUSITIS [None]
